FAERS Safety Report 7425366-X (Version None)
Quarter: 2011Q2

REPORT INFORMATION
  Report Type: 
  Country: None (occurrence: None)
  Receive Date: 20110420
  Receipt Date: 20110318
  Transmission Date: 20111010
  Serious: Yes (Other)
  Sender: FDA-Public Use
  Company Number: US-BAYER-2011-020915

PATIENT
  Sex: Female
  Weight: 90.703 kg

DRUGS (2)
  1. IBUPROFEN [Concomitant]
  2. YASMIN [Suspect]
     Indication: ORAL CONTRACEPTION
     Dosage: UNK
     Dates: start: 20020104

REACTIONS (6)
  - CHOLELITHIASIS [None]
  - FATIGUE [None]
  - VOMITING [None]
  - DYSPEPSIA [None]
  - GALLBLADDER DISORDER [None]
  - NAUSEA [None]
